FAERS Safety Report 5120163-2 (Version None)
Quarter: 2006Q4

REPORT INFORMATION
  Report Type: 
  Country: None (occurrence: None)
  Receive Date: 20061004
  Receipt Date: 20060911
  Transmission Date: 20070319
  Serious: Yes (Hospitalization)
  Sender: FDA-Public Use
  Company Number: US-BAYER-200613842BCC

PATIENT
  Age: 74 Year
  Sex: Female

DRUGS (6)
  1. ASPIRIN [Suspect]
     Indication: BACK PAIN
     Dosage: TOTAL DAILY DOSE: 2600 MG  UNIT DOSE: 325 MG
     Route: 048
     Dates: end: 20040101
  2. ACCUPRIL [Concomitant]
  3. VERAPAMIL [Concomitant]
  4. SYNTHROID [Concomitant]
  5. ACTOS [Concomitant]
  6. NOVOLIN N INSULIN [Concomitant]

REACTIONS (2)
  - CARDIAC FAILURE CONGESTIVE [None]
  - DYSPNOEA [None]
